FAERS Safety Report 5340344-2 (Version None)
Quarter: 2007Q2

REPORT INFORMATION
  Report Type: 
  Country: None (occurrence: None)
  Receive Date: 20070405
  Receipt Date: 20070103
  Transmission Date: 20071010
  Serious: No
  Sender: FDA-Public Use
  Company Number: US200701000484

PATIENT
  Age: 59 Year
  Sex: Female

DRUGS (6)
  1. CYMBALTA [Suspect]
     Indication: DEPRESSION
     Dosage: SEE IMAGE
     Route: 048
     Dates: start: 20061201
  2. AZATHIOPRINE [Concomitant]
  3. COZAAR [Concomitant]
  4. METOPROLOL TARTRATE [Concomitant]
  5. MAXZIDE [Concomitant]
  6. LORAZEPAM [Concomitant]

REACTIONS (5)
  - CRYING [None]
  - DEPRESSED MOOD [None]
  - HYPERHIDROSIS [None]
  - INSOMNIA [None]
  - STOMACH DISCOMFORT [None]
